FAERS Safety Report 19503059 (Version 1)
Quarter: 2021Q3

REPORT INFORMATION
  Report Type: Report from Study
  Country: IT (occurrence: IT)
  Receive Date: 20210707
  Receipt Date: 20210707
  Transmission Date: 20211014
  Serious: Yes (Other)
  Sender: FDA-Public Use
  Company Number: IT-PFIZER INC-2021778450

PATIENT
  Age: 56 Year
  Sex: Female

DRUGS (2)
  1. CITALOPRAM [Suspect]
     Active Substance: CITALOPRAM HYDROBROMIDE
     Dosage: 10 DROP, 1X/DAY
     Route: 048
     Dates: start: 20210101, end: 20210401
  2. XANAX [Suspect]
     Active Substance: ALPRAZOLAM
     Dosage: 15 DROP, 1X/DAY
     Route: 048
     Dates: start: 20210101, end: 20210401

REACTIONS (1)
  - Syncope [Recovering/Resolving]

NARRATIVE: CASE EVENT DATE: 20210401
